FAERS Safety Report 6238016-5 (Version None)
Quarter: 2009Q2

REPORT INFORMATION
  Report Type: 
  Country: None (occurrence: None)
  Receive Date: 20090617
  Receipt Date: 20090617
  Transmission Date: 20091009
  Serious: Yes (Other)
  Sender: FDA-Public Use
  Company Number: None

PATIENT
  Age: 61 Year
  Sex: Female
  Weight: 64.4108 kg

DRUGS (1)
  1. ALENDRONATE SODIUM [Suspect]
     Indication: OSTEOPOROSIS
     Dosage: 70MG ONCE WEEKLY PO
     Route: 048
     Dates: start: 20090415, end: 20090610

REACTIONS (14)
  - CHEST PAIN [None]
  - COUGH [None]
  - DIZZINESS [None]
  - DYSGEUSIA [None]
  - DYSPNOEA [None]
  - FLATULENCE [None]
  - HEADACHE [None]
  - JAW DISORDER [None]
  - OESOPHAGEAL PAIN [None]
  - ORAL HERPES [None]
  - OROPHARYNGEAL PAIN [None]
  - RASH [None]
  - TOOTH DISORDER [None]
  - VISION BLURRED [None]
